FAERS Safety Report 8264555-1 (Version None)
Quarter: 2012Q2

REPORT INFORMATION
  Report Type: 
  Country: None (occurrence: None)
  Receive Date: 20120406
  Receipt Date: 20120329
  Transmission Date: 20120825
  Serious: Yes (Death)
  Sender: FDA-Public Use
  Company Number: JP-UCBSA-054304

PATIENT
  Age: 40 Year
  Sex: Female

DRUGS (3)
  1. VALPROATE SODIUM [Concomitant]
     Indication: COMPLEX PARTIAL SEIZURES
     Dosage: DAILY DOSE: 400 MG
     Route: 048
     Dates: end: 20120229
  2. KEPPRA [Suspect]
     Route: 048
     Dates: start: 20111205, end: 20120130
  3. KEPPRA [Suspect]
     Indication: COMPLEX PARTIAL SEIZURES
     Route: 048
     Dates: start: 20120131, end: 20120229

REACTIONS (1)
  - DEATH [None]
